FAERS Safety Report 5351426-3 (Version None)
Quarter: 2007Q2

REPORT INFORMATION
  Report Type: 
  Country: None (occurrence: None)
  Receive Date: 20070608
  Receipt Date: 20070530
  Transmission Date: 20071010
  Serious: Yes (Death)
  Sender: FDA-Public Use
  Company Number: US-SHR-US-2007-019920

PATIENT
  Age: 24 Year
  Sex: Male

DRUGS (2)
  1. MAGNEVIST [Suspect]
     Dosage: UNK, 1 DOSE
     Dates: start: 20020301, end: 20020301
  2. MAGNEVIST [Suspect]
     Dosage: UNK, 1 DOSE
     Dates: start: 20040801, end: 20040801

REACTIONS (2)
  - NEPHROGENIC FIBROSING DERMOPATHY [None]
  - PROGRESSIVE MASSIVE FIBROSIS [None]
